FAERS Safety Report 8906274 (Version 1)
Quarter: 2012Q4

REPORT INFORMATION
  Report Type: Spontaneous
  Country: CA (occurrence: None)
  Receive Date: 20121107
  Receipt Date: 20121107
  Transmission Date: 20130627
  Serious: Yes (Hospitalization)
  Sender: FDA-Public Use
  Company Number: 2012000236

PATIENT
  Age: 76 Year
  Sex: Female
  Weight: 73 kg

DRUGS (7)
  1. ACEON (PERINDOPRIL ERBUMINE) TABLET [Suspect]
     Indication: PRODUCT USED FOR UNKNOWN INDICATION
  2. LOZIDE [Suspect]
     Route: 048
  3. DIOVAN (VALSARTAN) [Suspect]
  4. GLUCOPHAGE [Suspect]
     Route: 048
  5. LIPITOR (ATORVASTATIN CALCIUM) [Suspect]
     Route: 048
  6. ACETYLSALICYLIC ACID [Concomitant]
  7. HYDROCHLOROTHIAZIDE (HYDROCHLOROTHIAZIDE) [Concomitant]

REACTIONS (3)
  - Tachycardia [None]
  - Throat irritation [None]
  - Cough [None]
